FAERS Safety Report 8575834-2 (Version None)
Quarter: 2012Q3

REPORT INFORMATION
  Report Type: 
  Country: None (occurrence: None)
  Receive Date: 20120807
  Receipt Date: 20120730
  Transmission Date: 20120928
  Serious: No
  Sender: FDA-Public Use
  Company Number: US-US-EMD SERONO, INC.-7148724

PATIENT
  Sex: Male
  Weight: 95 kg

DRUGS (7)
  1. PREZISTA [Concomitant]
     Indication: HIV INFECTION
  2. NORVIR [Concomitant]
     Indication: HIV INFECTION
  3. BYSTOLIC [Concomitant]
     Indication: PRODUCT USED FOR UNKNOWN INDICATION
  4. TRUVADA [Concomitant]
     Indication: HIV INFECTION
  5. LIPITOR [Concomitant]
     Indication: PRODUCT USED FOR UNKNOWN INDICATION
  6. TRILIPIX [Concomitant]
     Indication: PRODUCT USED FOR UNKNOWN INDICATION
  7. EGRIFTA [Suspect]
     Indication: LIPODYSTROPHY ACQUIRED
     Route: 058
     Dates: start: 20111103, end: 20120326

REACTIONS (3)
  - ARTHRALGIA [None]
  - MYALGIA [None]
  - DIARRHOEA [None]
